FAERS Safety Report 25742650 (Version 1)
Quarter: 2025Q3

REPORT INFORMATION
  Report Type: Spontaneous
  Country: US (occurrence: US)
  Receive Date: 20250830
  Receipt Date: 20250830
  Transmission Date: 20251021
  Serious: No
  Sender: TEVA
  Company Number: US-TEVA-VS-3362841

PATIENT
  Age: 45 Year
  Sex: Male

DRUGS (1)
  1. UZEDY [Suspect]
     Active Substance: RISPERIDONE
     Indication: Schizophrenia
     Dosage: 200 MG/0.56 ML
     Route: 058

REACTIONS (2)
  - Imprisonment [Unknown]
  - Product dose omission issue [Unknown]
